FAERS Safety Report 25431415 (Version 1)
Quarter: 2025Q2

REPORT INFORMATION
  Report Type: Other
  Country: IT (occurrence: IT)
  Receive Date: 20250613
  Receipt Date: 20250613
  Transmission Date: 20250717
  Serious: Yes (Life-Threatening)
  Sender: STRIDES
  Company Number: IT-ZAMBON-202501900COR

PATIENT
  Age: 14 Year
  Sex: Male
  Weight: 57 kg

DRUGS (3)
  1. IBUPROFEN [Suspect]
     Active Substance: IBUPROFEN
     Indication: Myopericarditis
     Route: 065
  2. COLCHICINE [Suspect]
     Active Substance: COLCHICINE
     Indication: Myopericarditis
     Route: 065
  3. HUMAN IMMUNOGLOBULIN G [Suspect]
     Active Substance: HUMAN IMMUNOGLOBULIN G
     Indication: Myopericarditis
     Route: 042

REACTIONS (3)
  - Myopericarditis [Recovered/Resolved]
  - Condition aggravated [Recovered/Resolved]
  - Drug ineffective for unapproved indication [Unknown]
